FAERS Safety Report 10886383 (Version 5)
Quarter: 2017Q3

REPORT INFORMATION
  Report Type: Report from Study
  Country: US (occurrence: US)
  Receive Date: 20150304
  Receipt Date: 20170808
  Transmission Date: 20171127
  Serious: Yes (Other)
  Sender: FDA-Public Use
  Company Number: US-SA-2014SA025189

PATIENT
  Age: 58 Year
  Sex: Female
  Weight: 83.91 kg

DRUGS (18)
  1. CLONAZEPAM. [Concomitant]
     Active Substance: CLONAZEPAM
     Indication: MUSCLE SPASMS
     Route: 065
     Dates: start: 1995
  2. ARICEPT [Concomitant]
     Active Substance: DONEPEZIL HYDROCHLORIDE
     Indication: DISTURBANCE IN ATTENTION
     Dosage: 10 MG
     Route: 065
     Dates: start: 2012
  3. DUAVEE [Concomitant]
     Active Substance: BAZEDOXIFENE ACETATE\ESTROGENS, CONJUGATED
     Dosage: 40/20 MG
     Route: 065
  4. ESTRACE [Concomitant]
     Active Substance: ESTRADIOL
     Route: 065
  5. COPAXONE [Concomitant]
     Active Substance: GLATIRAMER ACETATE
     Route: 065
     Dates: start: 201001, end: 201101
  6. AMPYRA [Concomitant]
     Active Substance: DALFAMPRIDINE
     Indication: GAIT DISTURBANCE
     Route: 065
     Dates: start: 2011
  7. CYMBALTA [Concomitant]
     Active Substance: DULOXETINE HYDROCHLORIDE
     Indication: DEPRESSION
     Dates: start: 1995
  8. COPAXONE [Concomitant]
     Active Substance: GLATIRAMER ACETATE
     Route: 058
     Dates: start: 201506
  9. TOVIAZ [Concomitant]
     Active Substance: FESOTERODINE FUMARATE
     Indication: BLADDER DISORDER
     Route: 065
     Dates: start: 2015
  10. AUBAGIO [Suspect]
     Active Substance: TERIFLUNOMIDE
     Indication: MULTIPLE SCLEROSIS
     Route: 048
     Dates: start: 201504, end: 20150531
  11. AUBAGIO [Suspect]
     Active Substance: TERIFLUNOMIDE
     Indication: MULTIPLE SCLEROSIS
     Route: 048
     Dates: start: 201312
  12. PROVIGIL [Concomitant]
     Active Substance: MODAFINIL
     Indication: FATIGUE
     Route: 065
     Dates: start: 2000
  13. BACLOFEN. [Concomitant]
     Active Substance: BACLOFEN
     Indication: MUSCLE SPASMS
     Route: 065
     Dates: start: 2010
  14. DERMOTIC [Concomitant]
     Active Substance: FLUOCINOLONE ACETONIDE
     Route: 065
  15. NORTRIPTYLINE [Concomitant]
     Active Substance: NORTRIPTYLINE
     Indication: HEADACHE
     Route: 065
     Dates: start: 2010
  16. NEXIUM [Concomitant]
     Active Substance: ESOMEPRAZOLE MAGNESIUM
     Indication: HIATUS HERNIA
     Route: 065
     Dates: start: 1989
  17. VITAMIN D [Concomitant]
     Active Substance: CHOLECALCIFEROL
     Dosage: 5000 MG
     Route: 065
  18. AUBAGIO [Suspect]
     Active Substance: TERIFLUNOMIDE
     Indication: MULTIPLE SCLEROSIS
     Route: 048
     Dates: end: 201506

REACTIONS (26)
  - Muscle spasms [Unknown]
  - Blood pressure increased [Recovering/Resolving]
  - Malaise [Unknown]
  - Onychoclasis [Recovered/Resolved]
  - Nail disorder [Recovering/Resolving]
  - Multiple sclerosis relapse [Unknown]
  - Chills [Unknown]
  - Migraine [Recovering/Resolving]
  - Skin discolouration [Unknown]
  - Asthenia [Unknown]
  - Nasopharyngitis [Unknown]
  - Onychomadesis [Recovered/Resolved]
  - Dyspnoea [Recovering/Resolving]
  - Headache [Unknown]
  - Sinusitis [Not Recovered/Not Resolved]
  - Limb discomfort [Recovered/Resolved]
  - Fatigue [Unknown]
  - Nail disorder [Unknown]
  - Blister [Recovered/Resolved]
  - Infection [Unknown]
  - Hair texture abnormal [Recovered/Resolved]
  - Pelvic prolapse [Unknown]
  - Aphonia [Unknown]
  - Dysphonia [Unknown]
  - Alopecia [Recovered/Resolved]
  - Hypoaesthesia [Unknown]

NARRATIVE: CASE EVENT DATE: 201409
